FAERS Safety Report 8444418-9 (Version None)
Quarter: 2012Q2

REPORT INFORMATION
  Report Type: 
  Country: None (occurrence: None)
  Receive Date: 20120611
  Receipt Date: 20120606
  Transmission Date: 20120825
  Serious: Yes (Death, Life-Threatening, Other)
  Sender: FDA-Public Use
  Company Number: 2011SP056505

PATIENT
  Age: 48 Year
  Sex: Male

DRUGS (8)
  1. LENDORMIN [Concomitant]
  2. TRAZODONE HYDROCHLORIDE [Concomitant]
  3. LORAZEPAM [Concomitant]
  4. MIRTAZAPINE [Suspect]
     Indication: DEPRESSION
     Dosage: 15 MG; QD; PO 30 MG;QD; PO 45 MG;QD;PO 45 MG;QD;PO 30 MG;QD;PO
     Route: 048
     Dates: start: 20110525, end: 20110605
  5. MIRTAZAPINE [Suspect]
     Indication: DEPRESSION
     Dosage: 15 MG; QD; PO 30 MG;QD; PO 45 MG;QD;PO 45 MG;QD;PO 30 MG;QD;PO
     Route: 048
     Dates: start: 20110613, end: 20110809
  6. MIRTAZAPINE [Suspect]
     Indication: DEPRESSION
     Dosage: 15 MG; QD; PO 30 MG;QD; PO 45 MG;QD;PO 45 MG;QD;PO 30 MG;QD;PO
     Route: 048
     Dates: start: 20110606, end: 20110612
  7. MIRTAZAPINE [Suspect]
     Indication: DEPRESSION
     Dosage: 15 MG; QD; PO 30 MG;QD; PO 45 MG;QD;PO 45 MG;QD;PO 30 MG;QD;PO
     Route: 048
     Dates: start: 20110521, end: 20110524
  8. SILECE [Concomitant]

REACTIONS (4)
  - TREATMENT NONCOMPLIANCE [None]
  - ASPHYXIA [None]
  - COMPLETED SUICIDE [None]
  - DRUG ERUPTION [None]
